FAERS Safety Report 20814545 (Version 2)
Quarter: 2023Q2

REPORT INFORMATION
  Report Type: Spontaneous
  Country: GB (occurrence: GB)
  Receive Date: 20220511
  Receipt Date: 20230508
  Transmission Date: 20230721
  Serious: Yes (Hospitalization, Other)
  Sender: FDA-Public Use
  Company Number: None

PATIENT
  Age: 10 Year
  Sex: Female

DRUGS (19)
  1. LINEZOLID [Suspect]
     Active Substance: LINEZOLID
     Indication: Product used for unknown indication
     Dosage: 900 MILLIGRAM DAILY; 300MG, FREQUENCY : 3 IN 1 DAY
     Route: 065
     Dates: end: 20220429
  2. OMEPRAZOLE [Suspect]
     Active Substance: OMEPRAZOLE
     Indication: Product used for unknown indication
     Dosage: 40 MILLIGRAM DAILY; 20MG, FREQUENCY : 2 IN 1 DAY
     Route: 065
  3. ELEXACAFTOR\IVACAFTOR\TEZACAFTOR [Suspect]
     Active Substance: ELEXACAFTOR\IVACAFTOR\TEZACAFTOR
     Indication: Cystic fibrosis
     Dosage: 75MG/50MG/100MG, MANUFACTURER: VERTEX PHARMACEUTICALS (UK) LIMITED.
     Route: 065
  4. ELEXACAFTOR\IVACAFTOR\TEZACAFTOR [Suspect]
     Active Substance: ELEXACAFTOR\IVACAFTOR\TEZACAFTOR
     Dosage: 75MG/50MG/100MG, ADDITIONAL INFO: MANUFACTURER: VERTEX PHARMACEUTICALS (UK) LIMITED.
     Route: 048
     Dates: end: 20220429
  5. KALYDECO [Suspect]
     Active Substance: IVACAFTOR
     Indication: Cystic fibrosis
     Route: 048
  6. AMIKACIN [Concomitant]
     Active Substance: AMIKACIN
     Indication: Product used for unknown indication
     Dosage: 1000 MILLIGRAM DAILY; 500MG,NEBULISED, FREQUENCY :2 IN 1 DAY
  7. BEDAQUILINE [Concomitant]
     Active Substance: BEDAQUILINE
     Indication: Product used for unknown indication
     Dosage: 200MG, FREQUENCY : 3 IN 1WEEKS
  8. BECLOMETHASONE DIPROPIONATE [Concomitant]
     Active Substance: BECLOMETHASONE DIPROPIONATE
     Indication: Product used for unknown indication
     Dosage: 200 MICROGRAM DAILY; PUFFS. VIA SPACER, 100MCG, FREQUENCY :2 IN 1 DAY
     Route: 055
  9. CHOLECALCIFEROL [Concomitant]
     Active Substance: CHOLECALCIFEROL
     Indication: Product used for unknown indication
     Dosage: 2 DOSAGE FORMS DAILY; UNIT DOSE:2 DF
     Route: 048
  10. CREON [Concomitant]
     Active Substance: PANCRELIPASE AMYLASE\PANCRELIPASE LIPASE\PANCRELIPASE PROTEASE
     Indication: Product used for unknown indication
     Dosage: WITH MEALS AND SNACKS AS DIRECTED BY DIETICIAN.
     Route: 048
  11. CYPROHEPTADINE [Concomitant]
     Active Substance: CYPROHEPTADINE
     Indication: Product used for unknown indication
     Dosage: .5 DOSAGE FORMS DAILY; 1/2 DAILY., UNIT DOSE: 0.5 DF
     Route: 048
  12. CYPROHEPTADINE [Concomitant]
     Active Substance: CYPROHEPTADINE
     Dosage: 2 MILLIGRAM DAILY; 4MG
     Route: 048
  13. CHOLECALCIFEROL [Concomitant]
     Active Substance: CHOLECALCIFEROL
     Indication: Product used for unknown indication
     Dosage: 800 IU (INTERNATIONAL UNIT) DAILY; MANUFACTURER: MYLAN., 800 IU
     Route: 048
  14. INSULIN ASPART [Concomitant]
     Active Substance: INSULIN ASPART
     Indication: Product used for unknown indication
     Dosage: AS DIRECTED BY DIABETES TEAM.
     Route: 058
  15. MENADIOL [Concomitant]
     Active Substance: MENADIOL
     Indication: Product used for unknown indication
     Dosage: 10 MILLIGRAM DAILY; ON MONDAYS, WEDNESDAYS AND FRIDAYS., UNIT DOSE : 10 MG
     Route: 048
  16. PYRIDOXINE [Concomitant]
     Active Substance: PYRIDOXINE
     Indication: Product used for unknown indication
     Dosage: 100 MILLIGRAM DAILY; UNIT DOSE : 100 MG
  17. SODIUM CHLORIDE [Concomitant]
     Active Substance: SODIUM CHLORIDE
     Indication: Product used for unknown indication
     Dosage: 2 DOSAGE FORMS DAILY; NEBULISER. 7%., UNIT DOSE : 1 DF, FREQUENCY : 2 IN 1 DAY
  18. ALBUTEROL [Concomitant]
     Active Substance: ALBUTEROL
     Indication: Product used for unknown indication
     Dosage: 2 DOSAGE FORMS DAILY; PUFFS. PRIOR TO BEDTIME VIA MDI AND SPACER., UNIT DOSE : 2 DF
     Route: 055
  19. VITAMIN D3 [Concomitant]
     Active Substance: CHOLECALCIFEROL
     Indication: Product used for unknown indication
     Dosage: 500IU

REACTIONS (14)
  - Lupus-like syndrome [Unknown]
  - Butterfly rash [Unknown]
  - Systemic lupus erythematosus [Unknown]
  - Vascular device infection [Unknown]
  - Drug hypersensitivity [Unknown]
  - Fungal infection [Unknown]
  - Personality change [Unknown]
  - Irritability [Unknown]
  - Mood swings [Unknown]
  - Disturbance in social behaviour [Unknown]
  - Arthritis [Unknown]
  - Emotional disorder [Unknown]
  - Mood altered [Unknown]
  - Crying [Unknown]
